FAERS Safety Report 7888456-3 (Version None)
Quarter: 2011Q4

REPORT INFORMATION
  Report Type: 
  Country: None (occurrence: None)
  Receive Date: 20111103
  Receipt Date: 20111031
  Transmission Date: 20120403
  Serious: Yes (Life-Threatening, Other)
  Sender: FDA-Public Use
  Company Number: PHEH2011US03225

PATIENT
  Sex: Female

DRUGS (1)
  1. LESCOL XL [Suspect]
     Route: 048

REACTIONS (2)
  - APPARENT DEATH [None]
  - FOOT FRACTURE [None]
